FAERS Safety Report 23700427 (Version 1)
Quarter: 2024Q2

REPORT INFORMATION
  Report Type: Other
  Country: US (occurrence: None)
  Receive Date: 20240403
  Receipt Date: 20240403
  Transmission Date: 20240715
  Serious: No
  Sender: FDA-Public Use
  Company Number: US-ROCHE-3532590

PATIENT
  Age: 72 Year
  Sex: Female
  Weight: 72.64 kg

DRUGS (10)
  1. OCREVUS [Suspect]
     Active Substance: OCRELIZUMAB
     Indication: Relapsing multiple sclerosis
     Dosage: PRESCRIBED ON 14/AUG/2023, DATE OF TREATMENT: 20/JUL/2021, 19/JAN/2021, 26/JUL/2022, 25/JAN/2022, 18
     Route: 042
     Dates: start: 202101
  2. ASPIRIN [Concomitant]
     Active Substance: ASPIRIN
  3. ESOMEPRAZOLE MAGNESIUM [Concomitant]
     Active Substance: ESOMEPRAZOLE MAGNESIUM
  4. EZETIMIBE [Concomitant]
     Active Substance: EZETIMIBE
  5. FLUOXETINE [Concomitant]
     Active Substance: FLUOXETINE HYDROCHLORIDE
  6. LEVOTHYROXINE [Concomitant]
     Active Substance: LEVOTHYROXINE\LEVOTHYROXINE SODIUM
  7. LIOTHYRONINE [Concomitant]
     Active Substance: LIOTHYRONINE
  8. PROPRANOLOL [Concomitant]
     Active Substance: PROPRANOLOL HYDROCHLORIDE
  9. ROSUVASTATIN [Concomitant]
     Active Substance: ROSUVASTATIN
  10. SOLIFENACIN [Concomitant]
     Active Substance: SOLIFENACIN

REACTIONS (5)
  - JC polyomavirus test positive [Unknown]
  - Migraine [Unknown]
  - Visual impairment [Unknown]
  - Depression [Unknown]
  - Fall [Unknown]

NARRATIVE: CASE EVENT DATE: 20230607
